FAERS Safety Report 4679299-2 (Version None)
Quarter: 2005Q2

REPORT INFORMATION
  Report Type: 
  Country: None (occurrence: None)
  Receive Date: 20050531
  Receipt Date: 20050518
  Transmission Date: 20051028
  Serious: Yes (Other)
  Sender: FDA-Public Use
  Company Number: HQWYE886623MAY05

PATIENT
  Sex: Female

DRUGS (1)
  1. SPALT LIQUA MIGRANE (IBUPROFEN, CAPSULE, LIQUID FILLED) [Suspect]
     Indication: MIGRAINE
     Dosage: 400 MG 3X PER 1 DAY
     Dates: start: 20050501, end: 20050501

REACTIONS (2)
  - DRUG EXPOSURE DURING PREGNANCY [None]
  - PREGNANCY TEST POSITIVE [None]
